FAERS Safety Report 8072318-5 (Version None)
Quarter: 2012Q1

REPORT INFORMATION
  Report Type: 
  Country: None (occurrence: None)
  Receive Date: 20120126
  Receipt Date: 20120120
  Transmission Date: 20120608
  Serious: No
  Sender: FDA-Public Use
  Company Number: US-PFIZER INC-2012017531

PATIENT
  Sex: Male
  Weight: 89.342 kg

DRUGS (8)
  1. ARTHROTEC [Suspect]
     Indication: INTERVERTEBRAL DISC DISORDER
  2. ARTHROTEC [Suspect]
     Indication: BACK PAIN
     Dosage: 100 MG, DAILY
     Route: 048
     Dates: start: 20111201, end: 20120114
  3. AMLODIPINE [Concomitant]
     Indication: HYPERTENSION
     Dosage: 5 MG, DAILY
  4. ARTHROTEC [Suspect]
     Indication: ARTHRALGIA
  5. CLONIDINE [Suspect]
     Indication: HYPERTENSION
     Dosage: 0.1 MG, AS NEEDED
  6. RANITIDINE [Concomitant]
     Indication: HYPERTENSION
     Dosage: 150 MG, DAILY
  7. ARTHROTEC [Suspect]
     Indication: PAIN IN EXTREMITY
  8. HYDROCHLOROTHIAZIDE [Concomitant]
     Indication: HYPERTENSION
     Dosage: 25 MG, DAILY

REACTIONS (1)
  - CONSTIPATION [None]
